FAERS Safety Report 24295250 (Version 1)
Quarter: 2024Q3

REPORT INFORMATION
  Report Type: Spontaneous
  Country: US (occurrence: US)
  Receive Date: 20240907
  Receipt Date: 20240907
  Transmission Date: 20241017
  Serious: Yes (Other)
  Sender: AMGEN
  Company Number: US-AMGEN-USASP2024177113

PATIENT

DRUGS (13)
  1. BLINATUMOMAB [Suspect]
     Active Substance: BLINATUMOMAB
     Indication: Acute lymphocytic leukaemia
     Dosage: ADMINISTERED FROM D4 TO D21 OF EACH CYCLE FOR 6 CYCLES, Q4WK
     Route: 065
  2. BLINATUMOMAB [Suspect]
     Active Substance: BLINATUMOMAB
     Dosage: 1 COURSE OF BLINATUMOMAB AFTER EACH 3 COURSES OF POMP (16 TOTAL CYCLES OF POMP/BLINATUMOMAB)
     Route: 065
  3. PREDNISONE [Suspect]
     Active Substance: PREDNISONE
     Indication: Acute lymphocytic leukaemia
     Dosage: MAINTENANCE THERAPY WAS WITH 12 COURSES OF POMP
     Route: 065
  4. CYCLOPHOSPHAMIDE [Concomitant]
     Active Substance: CYCLOPHOSPHAMIDE
     Indication: Acute lymphocytic leukaemia
     Dosage: AT 50% DOSE REDUCTION
  5. DEXAMETHASONE [Concomitant]
     Active Substance: DEXAMETHASONE
     Indication: Acute lymphocytic leukaemia
     Dosage: AT 50% DOSE REDUCTION
  6. METHOTREXATE [Concomitant]
     Active Substance: METHOTREXATE
     Indication: Acute lymphocytic leukaemia
     Dosage: AT 75% DOSE REDUCTION
  7. METHOTREXATE [Concomitant]
     Active Substance: METHOTREXATE
     Dosage: MAINTENANCE THERAPY WAS WITH 12 COURSES OF POMP
  8. CYTARABINE [Concomitant]
     Active Substance: CYTARABINE
     Indication: Acute lymphocytic leukaemia
     Dosage: AT 0.5 GRAM PER SQUARE METRE X 4 DOSES
  9. INOTUZUMAB OZOGAMICIN [Concomitant]
     Active Substance: INOTUZUMAB OZOGAMICIN
     Indication: Acute lymphocytic leukaemia
     Dosage: 0.6 MILLIGRAM/SQ. METER, ON DI
  10. INOTUZUMAB OZOGAMICIN [Concomitant]
     Active Substance: INOTUZUMAB OZOGAMICIN
     Dosage: 0.3 MILLIGRAM/SQ. METER, ON D8 OF CYCLE I
  11. INOTUZUMAB OZOGAMICIN [Concomitant]
     Active Substance: INOTUZUMAB OZOGAMICIN
     Dosage: 0.3 MILLIGRAM/SQ. METER, ON D1 AND D8 OF CYCLE 2-4 FOR A TOTAL DOSE OF 2.7 MG/M2
  12. VINCRISTINE [Concomitant]
     Active Substance: VINCRISTINE
     Indication: Acute lymphocytic leukaemia
     Dosage: MAINTENANCE THERAPY WAS WITH 12 COURSES OF POMP
  13. MERCAPTOPURINE [Concomitant]
     Active Substance: MERCAPTOPURINE
     Indication: Acute lymphocytic leukaemia
     Dosage: MAINTENANCE THERAPY WAS WITH 12 COURSES OF POMP

REACTIONS (1)
  - Acute lymphocytic leukaemia recurrent [Unknown]
